FAERS Safety Report 9349182 (Version 1)
Quarter: 2013Q2

REPORT INFORMATION
  Report Type: Spontaneous
  Country: US (occurrence: US)
  Receive Date: 20130614
  Receipt Date: 20130614
  Transmission Date: 20140414
  Serious: No
  Sender: FDA-Public Use
  Company Number: US-PFIZER INC-2013172936

PATIENT
  Age: 47 Year
  Sex: Female
  Weight: 99.77 kg

DRUGS (6)
  1. CHANTIX [Suspect]
     Indication: SMOKING CESSATION THERAPY
     Dosage: UNK
     Route: 048
     Dates: start: 2011
  2. CHANTIX [Suspect]
     Dosage: 1 MG, 1X/DAY (ONE 1MG TABLET IN THE MORNING)
     Route: 048
     Dates: start: 201101
  3. CHANTIX [Suspect]
     Dosage: 1 DF, 1/2 TABLET, UNK
     Dates: start: 201101
  4. CHANTIX [Suspect]
     Dosage: 1 DF, 1X/DAY
     Dates: end: 2012
  5. LISINOPRIL [Concomitant]
     Indication: HYPERTENSION
     Dosage: UNK
  6. GLUCOPHAGE [Concomitant]
     Indication: DIABETES MELLITUS
     Dosage: UNK

REACTIONS (3)
  - Abnormal dreams [Unknown]
  - Poor quality sleep [Unknown]
  - Treatment noncompliance [Unknown]
